FAERS Safety Report 20461944 (Version 1)
Quarter: 2022Q1

REPORT INFORMATION
  Report Type: Spontaneous
  Country: US (occurrence: US)
  Receive Date: 20220211
  Receipt Date: 20220211
  Transmission Date: 20220423
  Serious: No
  Sender: FDA-Public Use
  Company Number: US-FERAPHARMA-2021-US-009446

PATIENT
  Sex: Female

DRUGS (1)
  1. KEFLEX [Suspect]
     Active Substance: CEPHALEXIN
     Indication: Cystitis
     Route: 048
     Dates: start: 20210127, end: 2021

REACTIONS (1)
  - Drug ineffective [Not Recovered/Not Resolved]
